FAERS Safety Report 8347096-2 (Version None)
Quarter: 2012Q2

REPORT INFORMATION
  Report Type: 
  Country: None (occurrence: None)
  Receive Date: 20120509
  Receipt Date: 20120507
  Transmission Date: 20120825
  Serious: Yes (Other)
  Sender: FDA-Public Use
  Company Number: DK-ABBOTT-11P-044-0879927-00

PATIENT
  Age: 37 Year
  Sex: Male

DRUGS (2)
  1. HUMIRA [Suspect]
  2. HUMIRA [Suspect]
     Indication: PSORIASIS
     Dates: start: 20100301

REACTIONS (3)
  - HEADACHE [None]
  - MYDRIASIS [None]
  - EYE PAIN [None]
